FAERS Safety Report 8884043 (Version 1)
Quarter: 2012Q4

REPORT INFORMATION
  Report Type: 
  Country: US (occurrence: US)
  Receive Date: 20121102
  Receipt Date: 20121102
  Transmission Date: 20130627
  Serious: No
  Sender: FDA-Public Use
  Company Number: US-ASTRAZENECA-2012SE27465

PATIENT
  Age: 73 Year
  Sex: Male

DRUGS (5)
  1. CRESTOR [Suspect]
     Route: 048
     Dates: start: 20120417
  2. LOSARTIN [Concomitant]
  3. METFORMIN [Concomitant]
  4. METOPROLOL [Concomitant]
  5. TESTIM [Concomitant]

REACTIONS (1)
  - Skin reaction [Unknown]
